FAERS Safety Report 6605108-8 (Version None)
Quarter: 2010Q1

REPORT INFORMATION
  Report Type: 
  Country: None (occurrence: None)
  Receive Date: 20100226
  Receipt Date: 20100218
  Transmission Date: 20100710
  Serious: Yes (Other)
  Sender: FDA-Public Use
  Company Number: US-ELI_LILLY_AND_COMPANY-US200709006474

PATIENT
  Sex: Female
  Weight: 96.598 kg

DRUGS (4)
  1. BYETTA [Suspect]
     Indication: TYPE 2 DIABETES MELLITUS
     Dosage: 5 UG, 2/D
     Route: 058
     Dates: start: 20061229, end: 20070201
  2. BYETTA [Suspect]
     Dosage: 10 UG, 2/D
     Route: 058
     Dates: start: 20070201
  3. METFORMIN HYDROCHLORIDE [Concomitant]
     Dosage: 1000 MG, DAILY (1/D)
     Route: 065
  4. METFORMIN HYDROCHLORIDE [Concomitant]
     Dosage: 500 MG, 2/D
     Route: 065

REACTIONS (9)
  - AMNESIA [None]
  - CARBON MONOXIDE POISONING [None]
  - DISTURBANCE IN ATTENTION [None]
  - ELECTROCARDIOGRAM ABNORMAL [None]
  - FACIAL PALSY [None]
  - FATIGUE [None]
  - MOTOR DYSFUNCTION [None]
  - NIGHTMARE [None]
  - SPEECH DISORDER [None]
